FAERS Safety Report 5297807-8 (Version None)
Quarter: 2007Q2

REPORT INFORMATION
  Report Type: 
  Country: None (occurrence: None)
  Receive Date: 20070413
  Receipt Date: 20070413
  Transmission Date: 20071010
  Serious: No
  Sender: FDA-Public Use
  Company Number: None

PATIENT
  Age: 74 Year
  Sex: Female

DRUGS (2)
  1. PROGRAF [Suspect]
     Dosage: PROGRAF 5MG 2 CAPS DAILY PO
     Route: 048
  2. PROZAC [Suspect]
     Dosage: PROZAC 10MG 1 DAILY PO
     Route: 048

REACTIONS (2)
  - INTERCEPTED DRUG DISPENSING ERROR [None]
  - MEDICATION ERROR [None]
